FAERS Safety Report 13697725 (Version 1)
Quarter: 2017Q2

REPORT INFORMATION
  Report Type: Spontaneous
  Country: FR (occurrence: FR)
  Receive Date: 20170628
  Receipt Date: 20170628
  Transmission Date: 20170830
  Serious: Yes (Death, Life-Threatening)
  Sender: FDA-Public Use
  Company Number: FR-SA-2017SA114747

PATIENT
  Age: 73 Year
  Sex: Female

DRUGS (15)
  1. RIFAMPICIN [Suspect]
     Active Substance: RIFAMPIN
     Route: 042
     Dates: start: 20170426, end: 20170503
  2. COTAREG [Concomitant]
     Active Substance: HYDROCHLOROTHIAZIDE\VALSARTAN
     Dosage: 80/12.5 MG
  3. ACTISKENAN [Concomitant]
     Active Substance: MORPHINE SULFATE
  4. CLAFORAN [Suspect]
     Active Substance: CEFOTAXIME SODIUM
     Dosage: ROUTE- IV (INFUSION)
     Dates: start: 20170421, end: 20170424
  5. LERCAN [Concomitant]
     Active Substance: LERCANIDIPINE
     Dosage: 10 MG
  6. SKENAN [Concomitant]
     Active Substance: MORPHINE SULFATE
  7. PIPERACILLIN [Suspect]
     Active Substance: PIPERACILLIN
     Route: 042
     Dates: start: 20170424, end: 20170427
  8. NOVORAPID [Concomitant]
     Active Substance: INSULIN ASPART
  9. TAZOBACTAM [Suspect]
     Active Substance: TAZOBACTAM
     Dosage: ROUTE- IV (INFUSION)
     Dates: start: 20170424, end: 20170427
  10. VANCOMYCIN [Suspect]
     Active Substance: VANCOMYCIN
     Route: 042
     Dates: start: 20170203, end: 20170503
  11. CETIRIZINE [Concomitant]
     Active Substance: CETIRIZINE HYDROCHLORIDE
     Dosage: 10 MG
  12. LANTUS [Concomitant]
     Active Substance: INSULIN GLARGINE
  13. LEVOTHYROX [Concomitant]
     Active Substance: LEVOTHYROXINE
     Dosage: 50 MCG
  14. FUROSEMIDE. [Concomitant]
     Active Substance: FUROSEMIDE
     Dosage: 40 MG
  15. LYRICA [Concomitant]
     Active Substance: PREGABALIN
     Dosage: 50 MG

REACTIONS (1)
  - Drug reaction with eosinophilia and systemic symptoms [Fatal]

NARRATIVE: CASE EVENT DATE: 20170502
